FAERS Safety Report 21316177 (Version 5)
Quarter: 2023Q2

REPORT INFORMATION
  Report Type: Report from Study
  Country: US (occurrence: US)
  Receive Date: 20220910
  Receipt Date: 20230610
  Transmission Date: 20230722
  Serious: No
  Sender: FDA-Public Use
  Company Number: US-NOVARTISTESTPH-NVSC2022US204342

PATIENT
  Sex: Male

DRUGS (1)
  1. KESIMPTA [Suspect]
     Active Substance: OFATUMUMAB
     Indication: Multiple sclerosis
     Dosage: UNK
     Route: 065
     Dates: start: 202109

REACTIONS (5)
  - Weight decreased [Unknown]
  - Mood altered [Unknown]
  - Malaise [Unknown]
  - Cognitive disorder [Unknown]
  - Influenza like illness [Recovering/Resolving]
